FAERS Safety Report 16252510 (Version 5)
Quarter: 2019Q2

REPORT INFORMATION
  Report Type: Report from Study
  Country: BE (occurrence: BE)
  Receive Date: 20190429
  Receipt Date: 20190624
  Transmission Date: 20190711
  Serious: Yes (Other)
  Sender: FDA-Public Use
  Company Number: BE-BAYER-2019-045312

PATIENT
  Sex: Male

DRUGS (12)
  1. STIVARGA [Suspect]
     Active Substance: REGORAFENIB
     Indication: COLORECTAL CANCER
     Dosage: DAILY DOSE 160 MG
     Dates: start: 20190211
  2. STIVARGA [Suspect]
     Active Substance: REGORAFENIB
     Indication: COLORECTAL CANCER
     Dosage: DAILY DOSE 160 MG
     Dates: start: 20190318
  3. STIVARGA [Suspect]
     Active Substance: REGORAFENIB
     Indication: COLORECTAL CANCER
     Dosage: DOSE REDUCED
     Dates: start: 201905, end: 201905
  4. STIVARGA [Suspect]
     Active Substance: REGORAFENIB
     Indication: COLORECTAL CANCER
     Dosage: 120 MG DAILY
     Dates: start: 20190218
  5. STIVARGA [Suspect]
     Active Substance: REGORAFENIB
     Indication: COLORECTAL CANCER
     Dosage: 120 MG, QD
     Dates: start: 20190430, end: 2019
  6. PANTOMED [DEXPANTHENOL] [Concomitant]
     Dosage: UNK
  7. STIVARGA [Suspect]
     Active Substance: REGORAFENIB
     Indication: COLORECTAL CANCER
     Dosage: DAILY DOSE 160 MG
     Dates: start: 20190513
  8. BISOPROLOL [Concomitant]
     Active Substance: BISOPROLOL
     Dosage: UNK
  9. TRAMADOL/PARACETAMOL [Concomitant]
     Active Substance: ACETAMINOPHEN\TRAMADOL
     Indication: PAIN
     Dosage: 37,5/325 MG
  10. DERMOVATE [Concomitant]
     Active Substance: CLOBETASOL
     Indication: SKIN DISORDER
     Dosage: UNK
     Dates: start: 20190408
  11. TRIPLIXAM [Concomitant]
     Active Substance: AMLODIPINE BESYLATE\INDAPAMIDE\PERINDOPRIL ARGININE
     Dosage: UNK
  12. XGEVA [Concomitant]
     Active Substance: DENOSUMAB
     Dosage: 1 INJECTION/MONTH
     Dates: start: 20190415

REACTIONS (34)
  - Gait disturbance [Not Recovered/Not Resolved]
  - Change of bowel habit [Not Recovered/Not Resolved]
  - Hypotension [None]
  - Feeling cold [Not Recovered/Not Resolved]
  - Stomatitis [Not Recovered/Not Resolved]
  - Metastases to bone [None]
  - Alpha 1 foetoprotein decreased [None]
  - Muscle spasms [Not Recovered/Not Resolved]
  - Thirst [Not Recovered/Not Resolved]
  - Limb discomfort [Not Recovered/Not Resolved]
  - Pain [Not Recovered/Not Resolved]
  - Skin irritation [None]
  - Feeling abnormal [None]
  - Nausea [Recovering/Resolving]
  - Palmar-plantar erythrodysaesthesia syndrome [Not Recovered/Not Resolved]
  - Taste disorder [Not Recovered/Not Resolved]
  - Aphonia [Not Recovered/Not Resolved]
  - Feeling cold [None]
  - Disturbance in attention [Not Recovered/Not Resolved]
  - Fatigue [None]
  - Decreased appetite [None]
  - Neck pain [None]
  - Skin abrasion [None]
  - Photosensitivity reaction [None]
  - Fatigue [Not Recovered/Not Resolved]
  - Oropharyngeal pain [Recovering/Resolving]
  - Scan abnormal [None]
  - Chills [None]
  - Fall [Recovered/Resolved]
  - Visual impairment [Not Recovered/Not Resolved]
  - Pruritus [Recovered/Resolved]
  - Mucosal inflammation [None]
  - Visual impairment [None]
  - Off label use [None]

NARRATIVE: CASE EVENT DATE: 2019
